FAERS Safety Report 4599293-X (Version None)
Quarter: 2005Q1

REPORT INFORMATION
  Report Type: 
  Country: None (occurrence: None)
  Receive Date: 20050303
  Receipt Date: 20050303
  Transmission Date: 20050727
  Serious: Yes (Hospitalization)
  Sender: FDA-Public Use
  Company Number: None

PATIENT
  Age: 29 Year
  Sex: Female

DRUGS (1)
  1. PHENYTOIN [Suspect]
     Indication: CONVULSION
     Dates: start: 20041222, end: 20050108

REACTIONS (7)
  - ERYTHEMA [None]
  - FACE OEDEMA [None]
  - LIP DISORDER [None]
  - NECROSIS [None]
  - RASH MACULO-PAPULAR [None]
  - SCAB [None]
  - SWOLLEN TONGUE [None]
